FAERS Safety Report 4592752-5 (Version None)
Quarter: 2005Q1

REPORT INFORMATION
  Report Type: 
  Country: None (occurrence: None)
  Receive Date: 20050222
  Receipt Date: 20050207
  Transmission Date: 20050727
  Serious: Yes (Hospitalization)
  Sender: FDA-Public Use
  Company Number: 2005014703

PATIENT
  Age: 34 Year
  Sex: Female

DRUGS (4)
  1. CELECOXIB (CELECOXIB) [Suspect]
     Indication: PAIN IN EXTREMITY
     Dosage: 200 MG (100 MG, 2 IN 1 D), ORAL
     Route: 048
     Dates: start: 20041025, end: 20041123
  2. EUGYNON (ETHINYLESTRADIOL, LEVONORGESTREL) [Concomitant]
  3. AMITRIPTYLINE HCL [Concomitant]
  4. OMEPRAZOLE [Concomitant]

REACTIONS (2)
  - NECROSIS [None]
  - THROMBOANGIITIS OBLITERANS [None]
